FAERS Safety Report 7101512-2 (Version None)
Quarter: 2010Q4

REPORT INFORMATION
  Report Type: 
  Country: None (occurrence: None)
  Receive Date: 20101115
  Receipt Date: 20101109
  Transmission Date: 20110411
  Serious: Yes (Life-Threatening, Hospitalization, Other)
  Sender: FDA-Public Use
  Company Number: PHHY2010NL73020

PATIENT
  Sex: Female

DRUGS (3)
  1. S-OIV FOCETRIA 7.5AG 100% MF59 V-V111-A+INJ [Suspect]
     Indication: IMMUNISATION
     Dates: start: 20091116, end: 20091116
  2. EPIDURAL [Concomitant]
  3. OXYTOCIN [Concomitant]

REACTIONS (4)
  - CAESAREAN SECTION [None]
  - CEPHALO-PELVIC DISPROPORTION [None]
  - DRUG EXPOSURE DURING PREGNANCY [None]
  - OBSTRUCTED LABOUR [None]
